FAERS Safety Report 8402952-1 (Version None)
Quarter: 2012Q2

REPORT INFORMATION
  Report Type: 
  Country: None (occurrence: None)
  Receive Date: 20120601
  Receipt Date: 20120527
  Transmission Date: 20120825
  Serious: Yes (Other)
  Sender: FDA-Public Use
  Company Number: ES-GLAXOSMITHKLINE-B0803059A

PATIENT
  Age: 79 Year
  Sex: Male

DRUGS (7)
  1. DUTASTERIDE/TAMSULOSIN HYDROCHLORIDE [Suspect]
     Indication: BENIGN PROSTATIC HYPERPLASIA
     Route: 048
     Dates: start: 20120201, end: 20120201
  2. ATORVASTATIN CALCIUM [Concomitant]
  3. OMEPRAZOLE [Concomitant]
  4. ETORICOXIB [Concomitant]
  5. LANTUS [Concomitant]
     Indication: DIABETES MELLITUS
  6. ASPIRIN [Concomitant]
  7. JANUMET [Concomitant]
     Indication: DIABETES MELLITUS
     Route: 048

REACTIONS (2)
  - DIABETES MELLITUS INADEQUATE CONTROL [None]
  - BLOOD GLUCOSE INCREASED [None]
